FAERS Safety Report 7037296-6 (Version None)
Quarter: 2010Q4

REPORT INFORMATION
  Report Type: 
  Country: None (occurrence: None)
  Receive Date: 20101011
  Receipt Date: 20100928
  Transmission Date: 20110411
  Serious: Yes (Hospitalization, Other)
  Sender: FDA-Public Use
  Company Number: US-ELI_LILLY_AND_COMPANY-US201010000404

PATIENT
  Sex: Male

DRUGS (11)
  1. FORTEO [Suspect]
     Indication: SPINAL FRACTURE
     Dosage: 20 UG, DAILY (1/D)
  2. LORATADINE [Concomitant]
  3. VITAMIN D2 [Concomitant]
  4. ZINC [Concomitant]
  5. CALCIUM W/VITAMIN D NOS [Concomitant]
  6. GLUCOSAMINE [Concomitant]
  7. LIPITOR [Concomitant]
  8. DIOVAN [Concomitant]
  9. ALLOPURINOL [Concomitant]
  10. CELEBREX [Concomitant]
  11. ASPIRIN [Concomitant]

REACTIONS (6)
  - BALANCE DISORDER [None]
  - CONCUSSION [None]
  - FALL [None]
  - HAEMORRHAGE [None]
  - HEAD INJURY [None]
  - OFF LABEL USE [None]
